FAERS Safety Report 23895853 (Version 1)
Quarter: 2024Q2

REPORT INFORMATION
  Report Type: Spontaneous
  Country: US (occurrence: US)
  Receive Date: 20240524
  Receipt Date: 20240524
  Transmission Date: 20240716
  Serious: Yes (Disabling, Other)
  Sender: FDA-Public Use
  Company Number: US-OPELLA-2024OHG017453

PATIENT
  Sex: Female

DRUGS (1)
  1. TALC [Suspect]
     Active Substance: TALC
     Indication: Product used for unknown indication

REACTIONS (9)
  - Epithelioid mesothelioma [Unknown]
  - Physical disability [Unknown]
  - Deformity [Unknown]
  - Exposure to chemical pollution [Unknown]
  - Anxiety [Unknown]
  - Quality of life decreased [Unknown]
  - Asbestosis [Unknown]
  - Pain [Unknown]
  - Emotional distress [Unknown]

NARRATIVE: CASE EVENT DATE: 20231009
